FAERS Safety Report 10638421 (Version 1)
Quarter: 2014Q4

REPORT INFORMATION
  Report Type: Spontaneous
  Country: None (occurrence: None)
  Receive Date: 20141203
  Receipt Date: 20141203
  Transmission Date: 20150529
  Serious: Yes (Life-Threatening)
  Sender: FDA-Public Use
  Company Number: 54973 AE # 1578

PATIENT
  Age: 8 Month
  Sex: Female

DRUGS (2)
  1. BABY TEETHING [Suspect]
     Active Substance: ARABICA COFFEE BEAN\ATROPA BELLADONNA\CALCIUM PHOSPHATE\CHAMOMILE
     Indication: TEETHING
  2. HYLAND^S BABY TEETHING GEL [Suspect]
     Active Substance: HOMEOPATHICS
     Indication: TEETHING

REACTIONS (2)
  - Seizure [None]
  - Syncope [None]

NARRATIVE: CASE EVENT DATE: 20141017
